FAERS Safety Report 14781502 (Version 1)
Quarter: 2018Q2

REPORT INFORMATION
  Report Type: Spontaneous
  Country: PL (occurrence: PL)
  Receive Date: 20180419
  Receipt Date: 20180419
  Transmission Date: 20180711
  Serious: Yes (Other)
  Sender: FDA-Public Use
  Company Number: PL-MERCK KGAA-2046100

PATIENT
  Sex: Female

DRUGS (3)
  1. DUPHASTON [Concomitant]
     Active Substance: DYDROGESTERONE
  2. LUTEIN [Concomitant]
     Active Substance: LUTEIN
  3. NOVOTHYROX [Suspect]
     Active Substance: LEVOTHYROXINE SODIUM
     Indication: PRODUCT USED FOR UNKNOWN INDICATION

REACTIONS (2)
  - Maternal exposure during pregnancy [Recovered/Resolved]
  - Foetal death [Recovered/Resolved]
